FAERS Safety Report 24593864 (Version 1)
Quarter: 2024Q4

REPORT INFORMATION
  Report Type: Spontaneous
  Country: ES (occurrence: ES)
  Receive Date: 20241108
  Receipt Date: 20241108
  Transmission Date: 20250115
  Serious: Yes (Other)
  Sender: JAZZ
  Company Number: ES-JAZZ PHARMACEUTICALS-2024-ES-019905

PATIENT

DRUGS (4)
  1. CANNABIDIOL [Suspect]
     Active Substance: CANNABIDIOL
     Indication: Lennox-Gastaut syndrome
     Dosage: 7.5 MILLIGRAM/KILOGRAM, QD (PER DAY)
  2. BRIVARACETAM [Concomitant]
     Active Substance: BRIVARACETAM
     Indication: Lennox-Gastaut syndrome
     Dosage: UNK
  3. ZONISAMIDE [Concomitant]
     Active Substance: ZONISAMIDE
     Indication: Lennox-Gastaut syndrome
     Dosage: UNK
  4. VIGABATRIN [Concomitant]
     Active Substance: VIGABATRIN
     Indication: Lennox-Gastaut syndrome
     Dosage: UNK

REACTIONS (2)
  - Seizure [Recovered/Resolved]
  - Status epilepticus [Recovered/Resolved]
